FAERS Safety Report 9681699 (Version 3)
Quarter: 2014Q2

REPORT INFORMATION
  Report Type: Report from Study
  Country: GB (occurrence: GB)
  Receive Date: 20131111
  Receipt Date: 20140512
  Transmission Date: 20141212
  Serious: Yes (Hospitalization)
  Sender: FDA-Public Use
  Company Number: GB-US-EMD SERONO, INC.-7248461

PATIENT
  Age: 47 Year
  Sex: Male

DRUGS (2)
  1. REBIF [Suspect]
     Indication: RELAPSING-REMITTING MULTIPLE SCLEROSIS
     Route: 058
     Dates: start: 20130123, end: 20131014
  2. REBIF [Suspect]
     Route: 058
     Dates: start: 20131021, end: 20140501

REACTIONS (2)
  - Osteoarthritis [Recovered/Resolved]
  - Pyrexia [Recovered/Resolved]
